FAERS Safety Report 11266068 (Version 1)
Quarter: 2015Q3

REPORT INFORMATION
  Report Type: Spontaneous
  Country: NL (occurrence: NL)
  Receive Date: 20150713
  Receipt Date: 20150713
  Transmission Date: 20151125
  Serious: Yes (Other)
  Sender: FDA-Public Use
  Company Number: NL-BAYER-2015-372274

PATIENT
  Age: 11 Year

DRUGS (3)
  1. MEROPENEM. [Concomitant]
     Active Substance: MEROPENEM
  2. TOBI [Suspect]
     Active Substance: TOBRAMYCIN
     Dosage: 300 MG, BID
     Route: 055
  3. CIPROFLOXACIN BETAIN [Suspect]
     Active Substance: CIPROFLOXACIN
     Indication: PNEUMONIA PSEUDOMONAL

REACTIONS (6)
  - Empyema [Recovered/Resolved]
  - Pathogen resistance [Recovered/Resolved]
  - C-reactive protein increased [Recovered/Resolved]
  - Renal impairment [Recovered/Resolved]
  - Respiratory distress [Recovered/Resolved]
  - Drug level increased [Recovered/Resolved]
